FAERS Safety Report 18060534 (Version 1)
Quarter: 2020Q3

REPORT INFORMATION
  Report Type: Spontaneous
  Country: US (occurrence: US)
  Receive Date: 20200723
  Receipt Date: 20200723
  Transmission Date: 20201103
  Serious: No
  Sender: FDA-Public Use
  Company Number: US-ABBVIE-20K-163-3466004-00

PATIENT
  Age: 21 Year
  Sex: Female
  Weight: 54.48 kg

DRUGS (1)
  1. ORILISSA [Suspect]
     Active Substance: ELAGOLIX SODIUM
     Indication: ENDOMETRIOSIS
     Route: 048
     Dates: start: 202006, end: 202006

REACTIONS (1)
  - Polymenorrhoea [Recovered/Resolved]

NARRATIVE: CASE EVENT DATE: 202006
